FAERS Safety Report 18138666 (Version 2)
Quarter: 2021Q1

REPORT INFORMATION
  Report Type: Spontaneous
  Country: US (occurrence: US)
  Receive Date: 20200812
  Receipt Date: 20210107
  Transmission Date: 20210419
  Serious: No
  Sender: FDA-Public Use
  Company Number: US-KYOWAKIRIN-2020BKK013014

PATIENT

DRUGS (2)
  1. SANCUSO [Suspect]
     Active Substance: GRANISETRON
     Indication: PRODUCT USED FOR UNKNOWN INDICATION
     Dosage: UNK
     Route: 061
     Dates: start: 20200623, end: 2020
  2. SANCUSO [Suspect]
     Active Substance: GRANISETRON
     Dosage: UNK
     Route: 061
     Dates: start: 2020

REACTIONS (3)
  - Application site rash [Unknown]
  - Pruritus [Unknown]
  - Application site pruritus [Unknown]

NARRATIVE: CASE EVENT DATE: 20200805
